FAERS Safety Report 15968189 (Version 1)
Quarter: 2019Q1

REPORT INFORMATION
  Report Type: Spontaneous
  Country: FR (occurrence: FR)
  Receive Date: 20190215
  Receipt Date: 20190215
  Transmission Date: 20190418
  Serious: Yes (Death, Other)
  Sender: FDA-Public Use
  Company Number: FR-BRISTOL-MYERS SQUIBB COMPANY-BMS-2019-013951

PATIENT
  Age: 76 Year
  Sex: Female
  Weight: 53 kg

DRUGS (1)
  1. OPDIVO [Suspect]
     Active Substance: NIVOLUMAB
     Indication: LUNG ADENOCARCINOMA STAGE IV
     Dosage: 240 MG, UNK
     Route: 042
     Dates: start: 20181203, end: 20181203

REACTIONS (3)
  - Vomiting [Fatal]
  - Intestinal obstruction [Fatal]
  - Duodenitis [Fatal]

NARRATIVE: CASE EVENT DATE: 20181207
